FAERS Safety Report 7823170 (Version 2)
Quarter: 2013Q3

REPORT INFORMATION
  Report Type: Report from Study
  Country: NL (occurrence: NL)
  Receive Date: 20110223
  Receipt Date: 20130725
  Transmission Date: 20140515
  Serious: Yes (Hospitalization)
  Sender: FDA-Public Use
  Company Number: NL-ROCHE-760372

PATIENT
  Age: 67 Year
  Sex: Male

DRUGS (6)
  1. CAPECITABINE [Suspect]
     Indication: GASTRIC CANCER
     Dosage: FREQUENCY: BID FOR 2 WEEKS, 3 WEEKS, BID 5XPER WEEK, 5 WEEKS. LAST DOSE ON 27/DEC/2010
     Route: 048
  2. EPIRUBICIN [Suspect]
     Indication: GASTRIC CANCER
     Dosage: LAST DOSE ON 16/DEC/2010
     Route: 042
     Dates: start: 20101126
  3. CISPLATIN [Suspect]
     Indication: GASTRIC CANCER
     Dosage: FREQUENCY: Q3W / Q1W, 5 WEEKS. LAST DOSE ON 16/DEC/2010
     Route: 042
     Dates: start: 20101126
  4. METOCLOPRAMIDE [Concomitant]
  5. OMEPRAZOLE [Concomitant]
  6. ATENOLOL [Concomitant]

REACTIONS (1)
  - Large intestine perforation [Recovered/Resolved]
